FAERS Safety Report 8852514 (Version 6)
Quarter: 2013Q4

REPORT INFORMATION
  Report Type: Report from Study
  Country: DE (occurrence: DE)
  Receive Date: 20121022
  Receipt Date: 20131029
  Transmission Date: 20140711
  Serious: Yes (Hospitalization)
  Sender: FDA-Public Use
  Company Number: DE-ROCHE-1147307

PATIENT
  Age: 44 Year
  Sex: Male

DRUGS (5)
  1. PEG-INTERFERON ALFA 2A [Suspect]
     Indication: HEPATITIS C
     Route: 058
     Dates: start: 20120621
  2. RIBAVIRIN [Suspect]
     Indication: HEPATITIS C
     Route: 048
     Dates: start: 20120621
  3. ASUNAPREVIR [Suspect]
     Indication: HEPATITIS C
     Route: 048
     Dates: start: 20120621
  4. DACLATASVIR [Suspect]
     Indication: HEPATITIS C
     Route: 048
     Dates: start: 20120621
  5. CITALOPRAM [Concomitant]

REACTIONS (1)
  - Lymphadenopathy [Recovered/Resolved]
